FAERS Safety Report 14448587 (Version 3)
Quarter: 2018Q3

REPORT INFORMATION
  Report Type: Spontaneous
  Country: IE (occurrence: IE)
  Receive Date: 20180126
  Receipt Date: 20180828
  Transmission Date: 20181010
  Serious: Yes (Hospitalization, Other)
  Sender: FDA-Public Use
  Company Number: IE-SHIRE-IE201801741

PATIENT

DRUGS (4)
  1. HUMAN NORMAL IMMUNOGLOBULIN [Suspect]
     Active Substance: HUMAN IMMUNOGLOBULIN G
     Indication: PRODUCT USED FOR UNKNOWN INDICATION
     Dosage: UNK
     Route: 065
     Dates: start: 201709
  2. CLOZARIL [Suspect]
     Active Substance: CLOZAPINE
     Indication: PSYCHOTIC DISORDER
     Dosage: 150 MG, QD
     Route: 048
     Dates: start: 201312, end: 201709
  3. CLOZARIL [Suspect]
     Active Substance: CLOZAPINE
     Indication: SCHIZOPHRENIA
     Dosage: UNK
     Route: 048
     Dates: start: 20131029
  4. CLOZARIL [Suspect]
     Active Substance: CLOZAPINE
     Dosage: UNK
     Route: 048
     Dates: start: 20171228

REACTIONS (17)
  - Granulocytosis [Unknown]
  - Nausea [Unknown]
  - Headache [Unknown]
  - Sensory disturbance [Unknown]
  - General physical condition abnormal [Unknown]
  - Malaise [Unknown]
  - Paraesthesia [Unknown]
  - Rebound psychosis [Unknown]
  - Haemoglobin decreased [Not Recovered/Not Resolved]
  - Muscular weakness [Unknown]
  - Chronic inflammatory demyelinating polyradiculoneuropathy [Unknown]
  - White blood cell count decreased [Recovered/Resolved]
  - Product use issue [Unknown]
  - Neutropenia [Recovered/Resolved]
  - Mobility decreased [Unknown]
  - Ill-defined disorder [Unknown]
  - Cerebrovascular accident [Unknown]

NARRATIVE: CASE EVENT DATE: 2017
